FAERS Safety Report 7680756-5 (Version None)
Quarter: 2011Q3

REPORT INFORMATION
  Report Type: 
  Country: None (occurrence: None)
  Receive Date: 20110811
  Receipt Date: 20110811
  Transmission Date: 20111222
  Serious: Yes (Other)
  Sender: FDA-Public Use
  Company Number: None

PATIENT
  Age: 90 Year
  Sex: Male
  Weight: 68.4932 kg

DRUGS (2)
  1. LASIX [Concomitant]
  2. HYALGAN 20MG/20ML SANOFI AVENTIS [Suspect]
     Indication: ARTHRALGIA
     Dosage: 20MG ONCE A WEEK FOR 3 WEEKS INTRA-ARTICULAR
     Route: 014
     Dates: start: 20110422, end: 20110506

REACTIONS (9)
  - PAIN IN EXTREMITY [None]
  - MUSCULOSKELETAL DISORDER [None]
  - WEIGHT INCREASED [None]
  - ASTHENIA [None]
  - ARTHRALGIA [None]
  - SWELLING [None]
  - CARDIOVASCULAR DISORDER [None]
  - URINARY BLADDER HAEMORRHAGE [None]
  - DYSPNOEA [None]
